FAERS Safety Report 10066918 (Version 2)
Quarter: 2014Q2

REPORT INFORMATION
  Report Type: Spontaneous
  Country: CA (occurrence: CA)
  Receive Date: 20140409
  Receipt Date: 20140424
  Transmission Date: 20141212
  Serious: Yes (Other)
  Sender: FDA-Public Use
  Company Number: 2014SP001877

PATIENT
  Age: 57 Year
  Sex: Male
  Weight: 86.17 kg

DRUGS (14)
  1. METHOTREXATE [Suspect]
     Indication: PRODUCT USED FOR UNKNOWN INDICATION
  2. ENBREL [Suspect]
     Indication: PSORIASIS
     Dates: start: 201212
  3. CELEBREX [Concomitant]
  4. PREGABALIN [Concomitant]
  5. ASA [Concomitant]
  6. METFORMIN [Concomitant]
  7. VIT D [Concomitant]
  8. BUTRANS /00444001/ [Concomitant]
  9. HYDROVAL [Concomitant]
  10. BETADERM /00008501/ [Concomitant]
  11. COVERSYL /00790702/ [Concomitant]
  12. LOPROX [Concomitant]
  13. SENOKOT /00142201/ [Concomitant]
  14. ASAPHEN [Concomitant]

REACTIONS (7)
  - Myocardial infarction [Recovered/Resolved]
  - Liver injury [Not Recovered/Not Resolved]
  - Periarthritis [Recovering/Resolving]
  - Lower respiratory tract infection [Recovered/Resolved]
  - Dyspnoea [Unknown]
  - Dyspnoea exertional [Unknown]
  - Dizziness [Unknown]
